FAERS Safety Report 17845171 (Version 1)
Quarter: 2020Q2

REPORT INFORMATION
  Report Type: Spontaneous
  Country: CA (occurrence: CA)
  Receive Date: 20200601
  Receipt Date: 20200601
  Transmission Date: 20200714
  Serious: Yes (Hospitalization)
  Sender: FDA-Public Use
  Company Number: CA-ROCHE-2606184

PATIENT
  Age: 39 Year
  Sex: Female

DRUGS (3)
  1. ACTEMRA [Suspect]
     Active Substance: TOCILIZUMAB
     Indication: RHEUMATOID ARTHRITIS
     Dosage: CYCLICAL,84.0 DAYS
     Route: 042
  2. ORENCIA [Suspect]
     Active Substance: ABATACEPT
     Indication: RHEUMATOID ARTHRITIS
     Dosage: 5.0 YEARS
     Route: 065
  3. METHOTREXATE. [Suspect]
     Active Substance: METHOTREXATE
     Indication: RHEUMATOID ARTHRITIS
     Dosage: 360.0 DAYS
     Route: 065

REACTIONS (3)
  - Lung disorder [Not Recovered/Not Resolved]
  - Cough [Not Recovered/Not Resolved]
  - Dyspnoea [Not Recovered/Not Resolved]
